FAERS Safety Report 19438894 (Version 1)
Quarter: 2021Q2

REPORT INFORMATION
  Report Type: Spontaneous
  Country: US (occurrence: US)
  Receive Date: 20210618
  Receipt Date: 20210618
  Transmission Date: 20210717
  Serious: No
  Sender: FDA-Public Use
  Company Number: US-009507513-2105USA004938

PATIENT
  Sex: Female

DRUGS (2)
  1. IPILIMUMAB [Concomitant]
     Active Substance: IPILIMUMAB
     Indication: MELANOMA RECURRENT
     Dosage: UNK
  2. TEMODAR [Suspect]
     Active Substance: TEMOZOLOMIDE
     Indication: MELANOMA RECURRENT
     Dosage: UNK

REACTIONS (1)
  - Off label use [Unknown]
